FAERS Safety Report 4839171-1 (Version None)
Quarter: 2005Q4

REPORT INFORMATION
  Report Type: 
  Country: None (occurrence: None)
  Receive Date: 20051128
  Receipt Date: 20051128
  Transmission Date: 20060501
  Serious: Yes (Hospitalization)
  Sender: FDA-Public Use
  Company Number: None

PATIENT
  Age: 86 Year
  Sex: Female
  Weight: 79.4 kg

DRUGS (2)
  1. WARFARIN    5MG [Suspect]
     Indication: ATRIAL FIBRILLATION
     Dosage: WARFARIN 5MG  ON M, W, F, SUN  PO;  WARFARIN 7.5MG  T, TH, SAT  PO
     Route: 048
  2. WARFARIN    5MG [Suspect]
     Indication: THROMBOSIS PROPHYLAXIS
     Dosage: WARFARIN 5MG  ON M, W, F, SUN  PO;  WARFARIN 7.5MG  T, TH, SAT  PO
     Route: 048

REACTIONS (5)
  - ARTHRALGIA [None]
  - HAEMATOMA [None]
  - INTERNATIONAL NORMALISED RATIO INCREASED [None]
  - PAIN IN EXTREMITY [None]
  - PYREXIA [None]
